FAERS Safety Report 6103820-0 (Version None)
Quarter: 2009Q1

REPORT INFORMATION
  Report Type: 
  Country: None (occurrence: None)
  Receive Date: 20090305
  Receipt Date: 20090224
  Transmission Date: 20090719
  Serious: Yes (Other)
  Sender: FDA-Public Use
  Company Number: TR-JNJFOC-20090206606

PATIENT
  Age: 35 Year
  Sex: Female

DRUGS (4)
  1. TOPAMAX [Suspect]
     Indication: MIGRAINE
  2. PENICILLIN [Suspect]
     Indication: TONSILLITIS
  3. ANTIBIOTIC [Suspect]
     Indication: TONSILLITIS
  4. ANTI-INFLAMMATORY DRUGS [Concomitant]

REACTIONS (4)
  - ANAPHYLACTIC REACTION [None]
  - PARAESTHESIA [None]
  - TONSILLITIS [None]
  - VISION BLURRED [None]
